FAERS Safety Report 24433984 (Version 2)
Quarter: 2024Q4

REPORT INFORMATION
  Report Type: Spontaneous
  Country: US (occurrence: US)
  Receive Date: 20241014
  Receipt Date: 20241203
  Transmission Date: 20250114
  Serious: No
  Sender: FRESENIUS KABI
  Company Number: US-FreseniusKabi-FK202415108

PATIENT
  Age: 35 Year
  Sex: Female

DRUGS (1)
  1. HEPARIN SODIUM IN DEXTROSE [Suspect]
     Active Substance: HEPARIN SODIUM
     Indication: Embolism venous
     Dosage: FORM OF ADMINISTRATION: INJECTION, SOLUTION?(100 UNIT/ML) PREMIXED INFUSION?18 UNITS/KG/HOUR INCREAS
     Route: 042

REACTIONS (1)
  - Therapeutic product effect decreased [Unknown]

NARRATIVE: CASE EVENT DATE: 20241002
